FAERS Safety Report 18802645 (Version 1)
Quarter: 2021Q1

REPORT INFORMATION
  Report Type: Report from Study
  Country: US (occurrence: US)
  Receive Date: 20210128
  Receipt Date: 20210128
  Transmission Date: 20210419
  Serious: Yes (Hospitalization)
  Sender: FDA-Public Use
  Company Number: US-JNJFOC-20210119213

PATIENT
  Age: 59 Year
  Sex: Female

DRUGS (1)
  1. OPSUMIT [Suspect]
     Active Substance: MACITENTAN
     Indication: PRODUCT USED FOR UNKNOWN INDICATION
     Route: 065
     Dates: start: 202101

REACTIONS (5)
  - Loss of consciousness [Unknown]
  - Oxygen saturation decreased [Unknown]
  - Hypotension [Unknown]
  - Product dose omission issue [Recovered/Resolved]
  - Gastroenteritis viral [Unknown]

NARRATIVE: CASE EVENT DATE: 202101
